FAERS Safety Report 15736926 (Version 5)
Quarter: 2019Q3

REPORT INFORMATION
  Report Type: Report from Study
  Country: US (occurrence: US)
  Receive Date: 20181218
  Receipt Date: 20190709
  Transmission Date: 20191004
  Serious: Yes (Hospitalization)
  Sender: FDA-Public Use
  Company Number: US-ACTELION-A-US2016-141311

PATIENT
  Age: 13 Year
  Sex: Female
  Weight: 35.37 kg

DRUGS (5)
  1. VELETRI [Suspect]
     Active Substance: EPOPROSTENOL
     Dosage: 26 NG/KG, PER MIN
     Route: 042
  2. VELETRI [Suspect]
     Active Substance: EPOPROSTENOL
     Indication: PULMONARY HYPERTENSION
     Dosage: 48 NG/KG, PER MIN
     Route: 042
     Dates: start: 20160411, end: 20190620
  3. WARFARIN [Concomitant]
     Active Substance: WARFARIN
  4. REVATIO [Suspect]
     Active Substance: SILDENAFIL CITRATE
     Indication: PRODUCT USED FOR UNKNOWN INDICATION
     Route: 065
  5. LETAIRIS [Suspect]
     Active Substance: AMBRISENTAN
     Indication: PULMONARY HYPERTENSION
     Dosage: 10 MG, QD
     Route: 065
     Dates: start: 20190423

REACTIONS (16)
  - Vascular device infection [Unknown]
  - Catheter site swelling [Unknown]
  - Therapy non-responder [Unknown]
  - Catheter site erythema [Unknown]
  - Constipation [Unknown]
  - Catheter site warmth [Unknown]
  - Catheter site inflammation [Unknown]
  - Pain in jaw [Unknown]
  - Catheter site haemorrhage [Recovered/Resolved]
  - Drug ineffective [Unknown]
  - Blood pressure increased [Unknown]
  - Catheter site pain [Unknown]
  - Catheter site discharge [Unknown]
  - Device failure [Unknown]
  - Fatigue [Unknown]
  - Chest pain [Unknown]

NARRATIVE: CASE EVENT DATE: 20181223
